FAERS Safety Report 4708920-5 (Version None)
Quarter: 2005Q3

REPORT INFORMATION
  Report Type: 
  Country: None (occurrence: None)
  Receive Date: 20050705
  Receipt Date: 20050623
  Transmission Date: 20060218
  Serious: Yes (Life-Threatening, Hospitalization, Other)
  Sender: FDA-Public Use
  Company Number: 200510401BNE

PATIENT
  Age: 56 Year
  Sex: Female

DRUGS (7)
  1. ASPIRIN [Suspect]
  2. ACTONEL [Suspect]
     Dosage: 5 MG, TOTAL DAILY, ORAL
     Route: 048
     Dates: start: 20020501, end: 20040923
  3. ACTONEL [Suspect]
     Dosage: 5 MG, TOTAL DAILY, ORAL
     Route: 048
     Dates: start: 20050402
  4. AMILORIDE HCL AND HYDROCHLOROTHIAZIDE [Concomitant]
  5. SIMVASTATIN [Concomitant]
  6. DOSULEPIN [Concomitant]
  7. AMLODIPINE [Suspect]

REACTIONS (4)
  - BACK PAIN [None]
  - GASTRIC HAEMORRHAGE [None]
  - GASTRIC ULCER [None]
  - OESOPHAGEAL HAEMORRHAGE [None]
